FAERS Safety Report 21963147 (Version 1)
Quarter: 2023Q1

REPORT INFORMATION
  Report Type: Report from Study
  Country: US (occurrence: US)
  Receive Date: 20230207
  Receipt Date: 20230207
  Transmission Date: 20230417
  Serious: No
  Sender: FDA-Public Use
  Company Number: US-AMRYT PHARMACEUTICALS DAC-AEGR006075

PATIENT
  Age: 74 Year
  Sex: Female

DRUGS (58)
  1. METRELEPTIN [Suspect]
     Active Substance: METRELEPTIN
     Indication: Congenital generalised lipodystrophy
     Dosage: 5 MG, QD
     Route: 058
     Dates: start: 20170327, end: 20190331
  2. METRELEPTIN [Suspect]
     Active Substance: METRELEPTIN
     Dosage: 6.25 MG, QD
     Route: 058
     Dates: start: 20190401, end: 20200221
  3. AMLODIPINE [Concomitant]
     Active Substance: AMLODIPINE BESYLATE
     Indication: Hypertension
     Dosage: 5 MG, OD
     Route: 048
     Dates: start: 20161212, end: 20190623
  4. AMLODIPINE [Concomitant]
     Active Substance: AMLODIPINE BESYLATE
     Dosage: 5 MG, BID
     Route: 048
     Dates: start: 20190624, end: 20190804
  5. AMLODIPINE [Concomitant]
     Active Substance: AMLODIPINE BESYLATE
     Dosage: 7.5 MG, QD
     Route: 048
     Dates: start: 20190805, end: 20210706
  6. AMLODIPINE [Concomitant]
     Active Substance: AMLODIPINE BESYLATE
     Dosage: 10 MILLIGRAM, QD
     Route: 048
     Dates: start: 20210707
  7. ASPIRIN [Concomitant]
     Active Substance: ASPIRIN
     Indication: Cardiovascular event prophylaxis
     Dosage: 81 MG, OD
     Route: 048
  8. CALCIUM [Concomitant]
     Active Substance: CALCIUM
     Indication: Supplementation therapy
     Dosage: 600 MG, OD
     Route: 048
     Dates: start: 20110624, end: 20190623
  9. CALCIUM [Concomitant]
     Active Substance: CALCIUM
     Dosage: 600 MG, BID
     Route: 048
     Dates: start: 20190624, end: 20220525
  10. LEVALBUTEROL                       /01419301/ [Concomitant]
     Indication: Asthma
     Dosage: 2 PUFF, PRN
     Route: 055
     Dates: start: 20161115, end: 20190926
  11. LEVALBUTEROL                       /01419301/ [Concomitant]
     Dosage: 1.25 MG, TID
     Route: 055
     Dates: start: 20161115
  12. LEVOTHYROXINE [Concomitant]
     Active Substance: LEVOTHYROXINE
     Indication: Hypothyroidism
     Dosage: 88 UG, OD
     Route: 048
     Dates: start: 20160421, end: 20180426
  13. LEVOTHYROXINE [Concomitant]
     Active Substance: LEVOTHYROXINE
     Dosage: 125 UG, QD
     Route: 048
     Dates: start: 20210601
  14. LISINOPRIL [Concomitant]
     Active Substance: LISINOPRIL
     Indication: Hypertension
     Dosage: 40 MG, OD
     Route: 048
     Dates: start: 20160125, end: 20190616
  15. LISINOPRIL [Concomitant]
     Active Substance: LISINOPRIL
     Dosage: 20 MG, OD
     Route: 048
     Dates: start: 20190617
  16. MAGNESIUM OXIDE [Concomitant]
     Active Substance: MAGNESIUM OXIDE
     Indication: Supplementation therapy
     Dosage: 250 MG, QD
     Route: 048
     Dates: start: 20151110
  17. MECLIZINE                          /00072801/ [Concomitant]
     Indication: Vertigo
     Dosage: 25 MG, PRN
     Route: 048
     Dates: start: 20160626
  18. MELATONIN [Concomitant]
     Active Substance: MELATONIN
     Indication: Supplementation therapy
     Dosage: 1 TABLET, PRN
     Route: 048
     Dates: start: 20161011
  19. METOPROLOL [Concomitant]
     Active Substance: METOPROLOL
     Indication: Hypertension
     Dosage: 50 MG, BID
     Route: 048
     Dates: start: 20151110, end: 20220823
  20. METOPROLOL [Concomitant]
     Active Substance: METOPROLOL
     Dosage: 25 MILLIGRAM, BID
     Route: 048
     Dates: start: 20220824
  21. MYSOLINE [Concomitant]
     Active Substance: PRIMIDONE
     Indication: Essential tremor
     Dosage: 50 MG, OD
     Route: 048
     Dates: start: 20180503, end: 20180620
  22. MYSOLINE [Concomitant]
     Active Substance: PRIMIDONE
     Indication: Torticollis
     Dosage: 250 MG, OD
     Route: 048
     Dates: start: 20180621
  23. MYSOLINE [Concomitant]
     Active Substance: PRIMIDONE
     Dosage: 250 MILLIGRAM, QD
     Route: 048
     Dates: start: 20210901
  24. MYSOLINE [Concomitant]
     Active Substance: PRIMIDONE
     Dosage: 250 MILLIGRAM, BID
     Route: 048
     Dates: start: 20211202, end: 20220224
  25. COENZYME Q10 [Concomitant]
     Active Substance: DIETARY SUPPLEMENT\UBIDECARENONE
     Indication: Supplementation therapy
     Dosage: 100 MG, QD
     Route: 048
     Dates: start: 20180213
  26. VALTREX [Concomitant]
     Active Substance: VALACYCLOVIR HYDROCHLORIDE
     Indication: Herpes simplex
     Dosage: 500 MG, PRN
     Route: 048
     Dates: start: 20180525
  27. GABAPENTIN [Concomitant]
     Active Substance: GABAPENTIN
     Indication: Fibromyalgia
     Dosage: 200 MG, BID
     Route: 048
     Dates: start: 20170608, end: 20170830
  28. GABAPENTIN [Concomitant]
     Active Substance: GABAPENTIN
     Dosage: 100 MG, BID
     Route: 048
     Dates: start: 20180126, end: 20180315
  29. GABAPENTIN [Concomitant]
     Active Substance: GABAPENTIN
     Dosage: 300 MG, TID
     Route: 048
     Dates: start: 20180621, end: 20181205
  30. GABAPENTIN [Concomitant]
     Active Substance: GABAPENTIN
     Dosage: 300 MILLIGRAM, TID
     Route: 048
     Dates: start: 20201103, end: 20210105
  31. GABAPENTIN [Concomitant]
     Active Substance: GABAPENTIN
     Dosage: 600 MILLIGRAM
     Route: 048
     Dates: start: 20210106
  32. GABAPENTIN [Concomitant]
     Active Substance: GABAPENTIN
     Dosage: 800 MILLIGRAM, BID
     Route: 048
     Dates: start: 20211020, end: 20220223
  33. GABAPENTIN [Concomitant]
     Active Substance: GABAPENTIN
     Dosage: 300 MILLIGRAM, BID
     Route: 048
     Dates: start: 20220224
  34. ACETAMINOPHEN\OXYCODONE HYDROCHLORIDE\OXYCODONE TEREPHTHALATE [Concomitant]
     Active Substance: ACETAMINOPHEN\OXYCODONE HYDROCHLORIDE\OXYCODONE TEREPHTHALATE
     Indication: Arthralgia
     Dosage: 1 TABLET, PRN
     Route: 048
     Dates: start: 20180531, end: 20180620
  35. ACETAMINOPHEN\OXYCODONE HYDROCHLORIDE\OXYCODONE TEREPHTHALATE [Concomitant]
     Active Substance: ACETAMINOPHEN\OXYCODONE HYDROCHLORIDE\OXYCODONE TEREPHTHALATE
     Dosage: 1 TABLET, PRN
     Route: 048
     Dates: start: 20200218, end: 20210429
  36. ACETAMINOPHEN\OXYCODONE HYDROCHLORIDE\OXYCODONE TEREPHTHALATE [Concomitant]
     Active Substance: ACETAMINOPHEN\OXYCODONE HYDROCHLORIDE\OXYCODONE TEREPHTHALATE
     Dosage: 1 TABLET, PRN
     Route: 048
     Dates: start: 20211227
  37. VASCEPA [Concomitant]
     Active Substance: ICOSAPENT ETHYL
     Indication: Hyperlipidaemia
     Dosage: 2 G, QD
     Route: 048
     Dates: start: 20180813, end: 20201101
  38. VASCEPA [Concomitant]
     Active Substance: ICOSAPENT ETHYL
     Dosage: 2 GRAM, BID
     Route: 048
     Dates: start: 20201102
  39. BUSPIRONE [Concomitant]
     Active Substance: BUSPIRONE HYDROCHLORIDE
     Indication: Anxiety
     Dosage: 10 MG, TID
     Route: 048
     Dates: start: 20181019, end: 20190514
  40. BUSPIRONE [Concomitant]
     Active Substance: BUSPIRONE HYDROCHLORIDE
     Dosage: 7.5 MILLIGRAM, BID
     Route: 048
     Dates: start: 20190515
  41. FLUTICASONE [Concomitant]
     Active Substance: FLUTICASONE
     Indication: Seasonal allergy
     Dosage: 2 PUFFS, OD
     Route: 045
     Dates: start: 20180719, end: 20181024
  42. FLUTICASONE [Concomitant]
     Active Substance: FLUTICASONE
     Indication: Paranasal sinus discomfort
     Dosage: 2 PUFFS, PRN
     Route: 045
     Dates: start: 20190108
  43. ALLEGRA [Concomitant]
     Active Substance: FEXOFENADINE HYDROCHLORIDE
     Indication: Seasonal allergy
     Dosage: 180 MG, PRN
     Route: 048
     Dates: start: 20180316
  44. PAXIL                              /00500401/ [Concomitant]
     Indication: Anxiety
     Dosage: 30 MG, OD
     Route: 048
     Dates: start: 20190625, end: 20200329
  45. PAXIL                              /00500401/ [Concomitant]
     Dosage: 30 MILLIGRAM, BID
     Route: 048
     Dates: start: 20200330
  46. CRESTOR [Concomitant]
     Active Substance: ROSUVASTATIN CALCIUM
     Indication: Type IIa hyperlipidaemia
     Dosage: 40 MG, QD
     Route: 048
     Dates: start: 20180813
  47. TIZANIDINE [Concomitant]
     Active Substance: TIZANIDINE
     Indication: Essential tremor
     Dosage: 2 MILLIGRAM, QD
     Route: 048
     Dates: start: 20210611
  48. INSULIN DEGLUDEC [Concomitant]
     Active Substance: INSULIN DEGLUDEC
     Indication: Type 2 diabetes mellitus
     Dosage: 50 UNITS, QD
     Route: 058
     Dates: start: 20190815
  49. OZEMPIC [Concomitant]
     Active Substance: SEMAGLUTIDE
     Indication: Type 2 diabetes mellitus
     Dosage: 0.5 MILLIGRAM, WEEKLY
     Route: 058
     Dates: start: 20210601, end: 20210804
  50. OZEMPIC [Concomitant]
     Active Substance: SEMAGLUTIDE
     Dosage: 1 MILLIGRAM, WEEKLY
     Route: 058
     Dates: start: 20210805
  51. OZEMPIC [Concomitant]
     Active Substance: SEMAGLUTIDE
     Dosage: 0.5 MILLIGRAM, WEEKLY
     Route: 058
     Dates: start: 20220525
  52. FARXIGA [Concomitant]
     Active Substance: DAPAGLIFLOZIN PROPANEDIOL
     Indication: Type 2 diabetes mellitus
     Dosage: 10 MILLIGRAM, QD
     Route: 048
     Dates: start: 20210820
  53. VOLTAREN [Concomitant]
     Active Substance: DICLOFENAC SODIUM
     Indication: Arthralgia
     Dosage: 1 APPLICATION, QID
     Route: 061
     Dates: start: 20220227, end: 20220525
  54. LIDOCAINE [CHLORHEXIDINE;LIDOCAINE] [Concomitant]
     Indication: Arthralgia
     Dosage: 1 APPLICATION, QD
     Route: 061
     Dates: start: 20220227, end: 20220525
  55. ESCITALOPRAM OXALATE [Concomitant]
     Active Substance: ESCITALOPRAM OXALATE
     Indication: Anxiety
     Dosage: 10 MILLIGRAM, QD
     Route: 048
     Dates: start: 20220325
  56. VITAMIN D3 [Concomitant]
     Active Substance: CHOLECALCIFEROL
     Indication: Supplementation therapy
     Dosage: 1000 INTERNATIONAL UNIT, QD
     Route: 048
     Dates: start: 20220227
  57. ZOLOFT [Concomitant]
     Active Substance: SERTRALINE HYDROCHLORIDE
     Indication: Anxiety
     Dosage: 25 MILLIGRAM, QD
     Route: 048
     Dates: start: 20220421
  58. POLYETHYLENE GLYCOL 3350 [Concomitant]
     Active Substance: POLYETHYLENE GLYCOL 3350
     Indication: Constipation
     Dosage: 17 GRAM, QD
     Route: 048
     Dates: start: 20220711

REACTIONS (4)
  - Stress urinary incontinence [Not Recovered/Not Resolved]
  - COVID-19 [Recovered/Resolved]
  - Insomnia [Not Recovered/Not Resolved]
  - Bronchitis [Recovered/Resolved]

NARRATIVE: CASE EVENT DATE: 20220523
